FAERS Safety Report 8018928-2 (Version None)
Quarter: 2012Q1

REPORT INFORMATION
  Report Type: 
  Country: None (occurrence: None)
  Receive Date: 20120103
  Receipt Date: 20111222
  Transmission Date: 20120608
  Serious: Yes (Hospitalization)
  Sender: FDA-Public Use
  Company Number: IT-ASTRAZENECA-2011SE78258

PATIENT
  Age: 19704 Day
  Sex: Female
  Weight: 80 kg

DRUGS (3)
  1. FASLODEX [Suspect]
     Indication: BREAST CANCER METASTATIC
     Dosage: 2 VIALS OF 250 MG
     Route: 030
     Dates: start: 20111109
  2. LAPATINIB [Suspect]
     Indication: BREAST CANCER METASTATIC
     Dosage: DAILY
     Route: 048
     Dates: start: 20111109
  3. LETROZOLE [Suspect]
     Indication: BREAST CANCER METASTATIC
     Route: 048
     Dates: start: 20111109

REACTIONS (3)
  - CARDIAC FAILURE [None]
  - OEDEMA PERIPHERAL [None]
  - DYSPNOEA [None]
